FAERS Safety Report 4731901-2 (Version None)
Quarter: 2005Q3

REPORT INFORMATION
  Report Type: 
  Country: None (occurrence: None)
  Receive Date: 20050802
  Receipt Date: 20050721
  Transmission Date: 20060218
  Serious: Yes (Death, Other)
  Sender: FDA-Public Use
  Company Number: US-JNJFOC-20050302170

PATIENT
  Age: 4 Year
  Sex: Male

DRUGS (1)
  1. FENTANYL [Suspect]
     Route: 065

REACTIONS (3)
  - ACCIDENTAL DRUG INTAKE BY CHILD [None]
  - DRUG ADMINISTRATION ERROR [None]
  - OVERDOSE [None]
